FAERS Safety Report 7477837-8 (Version None)
Quarter: 2011Q2

REPORT INFORMATION
  Report Type: 
  Country: None (occurrence: None)
  Receive Date: 20110513
  Receipt Date: 20110218
  Transmission Date: 20111010
  Serious: No
  Sender: FDA-Public Use
  Company Number: US-ABBOTT-11P-163-0706705-00

PATIENT
  Sex: Female
  Weight: 66.738 kg

DRUGS (1)
  1. GENGRAF [Suspect]
     Indication: RHEUMATOID ARTHRITIS
     Dates: start: 20101112, end: 20101113

REACTIONS (2)
  - RASH [None]
  - RASH PRURITIC [None]
